FAERS Safety Report 4796367-5 (Version None)
Quarter: 2005Q4

REPORT INFORMATION
  Report Type: 
  Country: None (occurrence: None)
  Receive Date: 20051007
  Receipt Date: 20050921
  Transmission Date: 20060501
  Serious: Yes (Other)
  Sender: FDA-Public Use
  Company Number: FR-2005-013668

PATIENT
  Age: 41 Year
  Sex: Female
  Weight: 66 kg

DRUGS (4)
  1. BETAFERON (INTERFERON BETA - 1B) INJECTION, 250?G [Suspect]
     Indication: MULTIPLE SCLEROSIS
     Dosage: 250 UG EVERY 2D, SUBCUTANEOUS
     Route: 058
     Dates: start: 20050531
  2. ZOLOFT [Concomitant]
  3. LYSANXIA (PRAZEPAM) TABLET [Concomitant]
  4. STILNOX (ZOLPIDEM) [Concomitant]

REACTIONS (1)
  - GAMMA-GLUTAMYLTRANSFERASE INCREASED [None]
